FAERS Safety Report 10740545 (Version 4)
Quarter: 2015Q1

REPORT INFORMATION
  Report Type: Spontaneous
  Country: JP (occurrence: JP)
  Receive Date: 20150127
  Receipt Date: 20150324
  Transmission Date: 20150721
  Serious: Yes (Death, Other)
  Sender: FDA-Public Use
  Company Number: JP-JNJFOC-20150108939

PATIENT
  Age: 85 Year
  Sex: Male
  Weight: 65 kg

DRUGS (8)
  1. XARELTO [Suspect]
     Active Substance: RIVAROXABAN
     Indication: ATRIAL FIBRILLATION
     Route: 048
     Dates: start: 20150110, end: 20150112
  2. EDARAVONE [Concomitant]
     Active Substance: EDARAVONE
     Indication: CEREBRAL INFARCTION
     Route: 041
     Dates: start: 20141229, end: 20150109
  3. OZAGREL [Concomitant]
     Active Substance: OZAGREL
     Indication: CEREBRAL INFARCTION
     Route: 041
     Dates: start: 20141229, end: 20150109
  4. XARELTO [Suspect]
     Active Substance: RIVAROXABAN
     Indication: CEREBROVASCULAR ACCIDENT PROPHYLAXIS
     Route: 048
     Dates: start: 20150110, end: 20150112
  5. CRAVIT [Concomitant]
     Active Substance: LEVOFLOXACIN
     Route: 048
     Dates: start: 20141231, end: 20150105
  6. DONEPEZIL [Concomitant]
     Active Substance: DONEPEZIL
     Route: 048
     Dates: start: 20150105
  7. XARELTO [Suspect]
     Active Substance: RIVAROXABAN
     Indication: THROMBOSIS PROPHYLAXIS
     Route: 048
     Dates: start: 20150110, end: 20150112
  8. CRESTOR [Concomitant]
     Active Substance: ROSUVASTATIN CALCIUM
     Indication: LIPIDS ABNORMAL
     Route: 048
     Dates: start: 20141229, end: 20150104

REACTIONS (3)
  - Acute kidney injury [Fatal]
  - Cardiac failure acute [Fatal]
  - Blood creatine phosphokinase increased [Fatal]

NARRATIVE: CASE EVENT DATE: 20150112
